FAERS Safety Report 7491781-1 (Version None)
Quarter: 2011Q2

REPORT INFORMATION
  Report Type: 
  Country: None (occurrence: None)
  Receive Date: 20110519
  Receipt Date: 20110509
  Transmission Date: 20111010
  Serious: Yes (Other)
  Sender: FDA-Public Use
  Company Number: US-BAYER-200924399NA

PATIENT
  Sex: Male

DRUGS (7)
  1. NOREPINEPHRINE BITARTRATE [Concomitant]
  2. TRASYLOL [Suspect]
     Indication: CORONARY ARTERY BYPASS
     Dosage: 200 ML, UNK
     Route: 042
     Dates: start: 20041231
  3. HEPARIN [Concomitant]
  4. RED BLOOD CELLS [Concomitant]
     Dosage: 2 U, UNK
     Dates: start: 20041231
  5. FENTANYL [Concomitant]
  6. VERSED [Concomitant]
  7. PAVULON [Concomitant]

REACTIONS (11)
  - FEAR [None]
  - PAIN [None]
  - RENAL IMPAIRMENT [None]
  - RENAL FAILURE [None]
  - ANXIETY [None]
  - EMOTIONAL DISTRESS [None]
  - STRESS [None]
  - RENAL INJURY [None]
  - INJURY [None]
  - UNEVALUABLE EVENT [None]
  - ANHEDONIA [None]
